FAERS Safety Report 26206116 (Version 1)
Quarter: 2025Q4

REPORT INFORMATION
  Report Type: Spontaneous
  Country: US (occurrence: US)
  Receive Date: 20251229
  Receipt Date: 20251229
  Transmission Date: 20260117
  Serious: No
  Sender: LEO PHARM
  Company Number: US-LEO Pharma-385235

PATIENT
  Age: 28 Year
  Sex: Male

DRUGS (1)
  1. ADBRY [Suspect]
     Active Substance: TRALOKINUMAB-LDRM
     Indication: Dermatitis atopic
     Dosage: TREATMENT IS ONGOING; 600 MG OF ADBRY ON DAY 1 ADMINISTERED SUBCUTANEOUSLY
     Route: 058
     Dates: start: 202512

REACTIONS (1)
  - Mood swings [Unknown]
